FAERS Safety Report 9801119 (Version 1)
Quarter: 2014Q1

REPORT INFORMATION
  Report Type: Spontaneous
  Country: JP (occurrence: JP)
  Receive Date: 20140107
  Receipt Date: 20140107
  Transmission Date: 20141002
  Serious: Yes (Other)
  Sender: FDA-Public Use
  Company Number: JP-ROCHE-1329411

PATIENT
  Age: 7 Year
  Sex: Male

DRUGS (1)
  1. DIAZEPAM [Suspect]
     Indication: CONVULSION
     Route: 065

REACTIONS (1)
  - Central nervous system lesion [Recovered/Resolved]
